FAERS Safety Report 17127670 (Version 1)
Quarter: 2019Q4

REPORT INFORMATION
  Report Type: Spontaneous
  Country: US (occurrence: US)
  Receive Date: 20191206
  Receipt Date: 20191206
  Transmission Date: 20200122
  Serious: Yes (Death)
  Sender: FDA-Public Use
  Company Number: None

PATIENT
  Age: 74 Year
  Sex: Male
  Weight: 109.5 kg

DRUGS (1)
  1. MEROPENEM. [Suspect]
     Active Substance: MEROPENEM
     Indication: PNEUMONIA
     Dosage: ?          OTHER FREQUENCY:EVERY 8 HOURS;?
     Route: 042
     Dates: start: 20191128, end: 20191128

REACTIONS (1)
  - Anaphylactic shock [None]

NARRATIVE: CASE EVENT DATE: 20191128
